FAERS Safety Report 15759507 (Version 1)
Quarter: 2018Q4

REPORT INFORMATION
  Report Type: Spontaneous
  Country: GB (occurrence: GB)
  Receive Date: 20181226
  Receipt Date: 20181226
  Transmission Date: 20190205
  Serious: Yes (Other)
  Sender: FDA-Public Use
  Company Number: GB-TEVA-2018-GB-991314

PATIENT
  Age: 51 Year
  Sex: Female
  Weight: 52 kg

DRUGS (5)
  1. LOSARTAN. [Concomitant]
     Active Substance: LOSARTAN
     Dosage: 1 DOSAGE FORMS DAILY;
     Dates: start: 20170605
  2. NORIDAY [Concomitant]
     Active Substance: MESTRANOL\NORETHINDRONE
     Dosage: 1 DOSAGE FORMS DAILY;
     Dates: start: 20050214, end: 20181101
  3. RAMIPRIL. [Suspect]
     Active Substance: RAMIPRIL
     Dates: start: 20181112
  4. TOPIRAMATE. [Concomitant]
     Active Substance: TOPIRAMATE
     Dosage: 1 DOSAGE FORMS DAILY; AT NIGHT FOR 2 WEEKS
     Dates: start: 20180117
  5. AMLODIPINE [Concomitant]
     Active Substance: AMLODIPINE BESYLATE
     Dosage: 1 DOSAGE FORMS DAILY;
     Dates: start: 20170804

REACTIONS (2)
  - Abdominal pain [Unknown]
  - Drug hypersensitivity [Unknown]

NARRATIVE: CASE EVENT DATE: 20181128
